FAERS Safety Report 9453176 (Version 1)
Quarter: 2013Q3

REPORT INFORMATION
  Report Type: Spontaneous
  Country: US (occurrence: None)
  Receive Date: 20130724
  Receipt Date: 20130724
  Transmission Date: 20140515
  Serious: Yes (Hospitalization)
  Sender: FDA-Public Use
  Company Number: 2013PROUSA02937

PATIENT
  Age: 57 Year
  Sex: Male

DRUGS (2)
  1. PROVENGE (SIPULEUCEL-T) SUSPENSION, 250ML [Suspect]
     Indication: PROSTATE CANCER METASTATIC
     Route: 042
     Dates: start: 20130523, end: 20130523
  2. FENTANYL (FENTANYL CITRATE) [Concomitant]

REACTIONS (9)
  - Nausea [None]
  - Pain [None]
  - Constipation [None]
  - Anaemia [None]
  - General physical health deterioration [None]
  - Asthenia [None]
  - Vomiting [None]
  - Pyrexia [None]
  - Blood count abnormal [None]
